FAERS Safety Report 19929658 (Version 1)
Quarter: 2021Q4

REPORT INFORMATION
  Report Type: Spontaneous
  Country: HR (occurrence: HR)
  Receive Date: 20211007
  Receipt Date: 20211007
  Transmission Date: 20220303
  Serious: Yes (Other)
  Sender: FDA-Public Use
  Company Number: HR-PHOENIX LABS UNLIMITED COMPANY-HR-P18030-21-00059

PATIENT
  Age: 48 Year
  Sex: Female

DRUGS (5)
  1. ZOLEDRONIC ACID [Suspect]
     Active Substance: ZOLEDRONIC ACID
     Indication: Breast cancer metastatic
     Dosage: 4 MILLIGRAM, MONTHLY
     Route: 065
  2. LETROZOLE [Suspect]
     Active Substance: LETROZOLE
     Indication: Breast cancer metastatic
     Dosage: UNK
     Route: 065
  3. ERGOCALCIFEROL [Suspect]
     Active Substance: ERGOCALCIFEROL
     Indication: Osteoporosis
     Dosage: UNK
  4. RIBOCICLIB [Suspect]
     Active Substance: RIBOCICLIB
     Indication: Breast cancer
     Dosage: 600 MILLIGRAM
     Route: 065
     Dates: start: 201707
  5. CALCIUM [Suspect]
     Active Substance: CALCIUM
     Indication: Osteoporosis
     Dosage: UNK

REACTIONS (7)
  - Carbohydrate antigen 125 increased [Unknown]
  - Carcinoembryonic antigen increased [Unknown]
  - Neutrophil count decreased [Unknown]
  - Carbohydrate antigen 15-3 increased [Unknown]
  - White blood cell count decreased [Unknown]
  - Metastases to bone [Unknown]
  - Bone lesion [Unknown]
